FAERS Safety Report 9535048 (Version 1)
Quarter: 2013Q3

REPORT INFORMATION
  Report Type: Spontaneous
  Country: GB (occurrence: GB)
  Receive Date: 20130918
  Receipt Date: 20130918
  Transmission Date: 20140515
  Serious: Yes (Other)
  Sender: FDA-Public Use
  Company Number: GB-PFIZER INC-2013264833

PATIENT
  Age: 59 Year
  Sex: Male

DRUGS (13)
  1. DOXAZOSIN MESILATE [Suspect]
     Indication: HYPERTENSION
     Dosage: 2 MG, 1X/DAY
     Route: 048
     Dates: start: 20130224
  2. PRAVASTATIN [Concomitant]
     Indication: HYPERCHOLESTEROLAEMIA
     Dosage: 10 MG, UNK
     Route: 048
     Dates: start: 2011
  3. HYPROMELLOSE [Concomitant]
     Indication: DRY EYE
     Dosage: UNK
     Route: 050
     Dates: start: 2011
  4. METFORMIN [Concomitant]
     Indication: DIABETES MELLITUS
     Dosage: 1 G, 2X/DAY
     Route: 048
     Dates: start: 2009
  5. EZETIMIBE [Concomitant]
     Indication: HYPERTRIGLYCERIDAEMIA
     Dosage: 10 MG, 1X/DAY (AT NIGHT)
     Route: 048
     Dates: start: 2009
  6. BECLOMETASONE [Concomitant]
     Dosage: UNK
     Route: 045
  7. TADALAFIL [Concomitant]
     Dosage: 10 MG, UNK
     Dates: start: 2009
  8. AMLODIPINE [Concomitant]
     Dosage: 10 MG, 1X/DAY
     Dates: start: 2009
  9. BENDROFLUMETHIAZIDE [Concomitant]
     Dosage: 2.5 MG, 1X/DAY
     Dates: start: 2009
  10. ACETYLSALICYLIC ACID [Concomitant]
     Dosage: 75 MG, 1X/DAY
     Dates: start: 2009
  11. LANSOPRAZOLE [Concomitant]
     Dosage: 15 MG, 2X/DAY
  12. ATENOLOL [Concomitant]
     Dosage: 25 MG, 1X/DAY
  13. PERINDOPRIL [Concomitant]
     Dosage: 8 MG, 1X/DAY
     Dates: start: 2009

REACTIONS (2)
  - Chest pain [Recovered/Resolved]
  - Myocardial ischaemia [Unknown]
